FAERS Safety Report 14909832 (Version 1)
Quarter: 2018Q2

REPORT INFORMATION
  Report Type: Spontaneous
  Country: US (occurrence: US)
  Receive Date: 20180430
  Receipt Date: 20180430
  Transmission Date: 20180711
  Serious: Yes (Disabling)
  Sender: FDA-Public Use
  Company Number: None

PATIENT
  Age: 64 Year
  Sex: Female
  Weight: 55.8 kg

DRUGS (7)
  1. VIT B [Concomitant]
     Active Substance: VITAMIN B
  2. MULTI VITAMIN [Concomitant]
     Active Substance: VITAMINS
  3. LOVASTATIN. [Concomitant]
     Active Substance: LOVASTATIN
  4. LEVOTHYROXINE. [Concomitant]
     Active Substance: LEVOTHYROXINE
  5. PROLIA [Suspect]
     Active Substance: DENOSUMAB
     Indication: OSTEOPOROSIS
     Dosage: ?          OTHER FREQUENCY:EVERY 6 MONTHS;?
     Route: 030
     Dates: start: 20160510, end: 20170110
  6. CALCIUM [Concomitant]
     Active Substance: CALCIUM
  7. FISH OIL [Concomitant]
     Active Substance: FISH OIL

REACTIONS (3)
  - Loss of personal independence in daily activities [None]
  - Dysarthria [None]
  - Social problem [None]

NARRATIVE: CASE EVENT DATE: 20170117
